FAERS Safety Report 14119079 (Version 1)
Quarter: 2017Q4

REPORT INFORMATION
  Report Type: Report from Study
  Country: US (occurrence: US)
  Receive Date: 20171024
  Receipt Date: 20171024
  Transmission Date: 20180321
  Serious: Yes (Other)
  Sender: FDA-Public Use
  Company Number: US-ROCHE-2012707

PATIENT

DRUGS (1)
  1. RITUXIMAB. [Suspect]
     Active Substance: RITUXIMAB
     Indication: MULTIPLE SCLEROSIS
     Dosage: 1000 OR 2000MG RITUXIMAB IV EVERY 6-12 MONTHS
     Route: 042

REACTIONS (7)
  - Anal abscess [Unknown]
  - Product use in unapproved indication [Unknown]
  - Off label use [Unknown]
  - Meningioma benign [Unknown]
  - Infusion related reaction [Unknown]
  - Pyoderma gangrenosum [Unknown]
  - Fistula [Unknown]
